FAERS Safety Report 16979574 (Version 1)
Quarter: 2019Q4

REPORT INFORMATION
  Report Type: Spontaneous
  Country: CA (occurrence: CA)
  Receive Date: 20191031
  Receipt Date: 20191031
  Transmission Date: 20200122
  Serious: Yes (Hospitalization, Other)
  Sender: FDA-Public Use
  Company Number: CA-ABBVIE-19K-028-2983555-00

PATIENT
  Sex: Female

DRUGS (5)
  1. LUPRON [Suspect]
     Active Substance: LEUPROLIDE ACETATE
     Indication: PRODUCT USED FOR UNKNOWN INDICATION
     Route: 030
  2. VISANNE [Concomitant]
     Active Substance: DIENOGEST
     Indication: PRODUCT USED FOR UNKNOWN INDICATION
  3. ORILISSA [Suspect]
     Active Substance: ELAGOLIX SODIUM
     Indication: PRODUCT USED FOR UNKNOWN INDICATION
     Route: 048
  4. ORILISSA [Suspect]
     Active Substance: ELAGOLIX SODIUM
     Route: 048
  5. FIBRISTAL [Concomitant]
     Active Substance: ULIPRISTAL
     Indication: PRODUCT USED FOR UNKNOWN INDICATION

REACTIONS (14)
  - Aphasia [Unknown]
  - Adenomyosis [Unknown]
  - Uterine leiomyoma [Recovered/Resolved]
  - Pain [Unknown]
  - Cyst [Unknown]
  - Night sweats [Unknown]
  - Endometriosis [Not Recovered/Not Resolved]
  - Uterine leiomyoma [Unknown]
  - Bladder disorder [Unknown]
  - Alopecia [Unknown]
  - Menopausal symptoms [Unknown]
  - Libido decreased [Recovering/Resolving]
  - Confusional state [Unknown]
  - Hot flush [Unknown]

NARRATIVE: CASE EVENT DATE: 2001
